FAERS Safety Report 19858937 (Version 1)
Quarter: 2021Q3

REPORT INFORMATION
  Report Type: Spontaneous
  Country: US (occurrence: US)
  Receive Date: 20210920
  Receipt Date: 20210920
  Transmission Date: 20211014
  Serious: No
  Sender: FDA-Public Use
  Company Number: None

PATIENT
  Age: 68 Year
  Sex: Male

DRUGS (1)
  1. TACROLIMUS CAP 1 MG [Suspect]
     Active Substance: TACROLIMUS
     Route: 048
     Dates: start: 202009

REACTIONS (2)
  - Graft versus host disease [None]
  - Stomatitis [None]

NARRATIVE: CASE EVENT DATE: 20210917
